FAERS Safety Report 9096765 (Version 2)
Quarter: 2013Q4

REPORT INFORMATION
  Report Type: Spontaneous
  Country: GB (occurrence: None)
  Receive Date: 20130124
  Receipt Date: 20131008
  Transmission Date: 20140711
  Serious: Yes (Other)
  Sender: FDA-Public Use
  Company Number: AUR-APL-2013-00770

PATIENT
  Age: 37 Year
  Sex: Female
  Weight: 76.2 kg

DRUGS (2)
  1. MIRTAZAPINE (MIRTAZAPINE) [Suspect]
     Indication: DEPRESSION
     Route: 048
     Dates: start: 20091010
  2. HORMONE REPLACEMENT THERAPY [Concomitant]

REACTIONS (13)
  - Eye swelling [None]
  - Cough [None]
  - Sneezing [None]
  - Rash pruritic [None]
  - Diarrhoea [None]
  - Decreased appetite [None]
  - Oropharyngeal pain [None]
  - Speech disorder [None]
  - Chest discomfort [None]
  - Cough [None]
  - Pain [None]
  - Withdrawal syndrome [None]
  - Medication error [None]
